FAERS Safety Report 11402989 (Version 1)
Quarter: 2015Q3

REPORT INFORMATION
  Report Type: Spontaneous
  Country: US (occurrence: US)
  Receive Date: 20150821
  Receipt Date: 20150821
  Transmission Date: 20151125
  Serious: No
  Sender: FDA-Public Use
  Company Number: US-ROCHE-1308208

PATIENT
  Sex: Male

DRUGS (4)
  1. PEGASYS [Suspect]
     Active Substance: PEGINTERFERON ALFA-2A
     Route: 058
  2. RIBAVIRIN. [Suspect]
     Active Substance: RIBAVIRIN
     Indication: CHRONIC HEPATITIS C
     Dosage: DIVIDED DOSES
     Route: 048
     Dates: start: 20130905
  3. PEGASYS [Suspect]
     Active Substance: PEGINTERFERON ALFA-2A
     Indication: CHRONIC HEPATITIS C
     Route: 058
     Dates: start: 20130905
  4. TELAPREVIR [Suspect]
     Active Substance: TELAPREVIR
     Indication: CHRONIC HEPATITIS C
     Route: 065
     Dates: start: 20130905

REACTIONS (14)
  - Infection [Unknown]
  - Vomiting [Unknown]
  - Fatigue [Unknown]
  - Viral load increased [Unknown]
  - Hiatus hernia [Unknown]
  - Dyspnoea [Unknown]
  - Nausea [Unknown]
  - Disturbance in attention [Unknown]
  - Medication error [Unknown]
  - Insomnia [Unknown]
  - Skin disorder [Unknown]
  - Memory impairment [Unknown]
  - Pruritus [Unknown]
  - Abasia [Unknown]
